FAERS Safety Report 16320878 (Version 1)
Quarter: 2019Q2

REPORT INFORMATION
  Report Type: Spontaneous
  Country: PT (occurrence: PT)
  Receive Date: 20190516
  Receipt Date: 20190516
  Transmission Date: 20190711
  Serious: Yes (Hospitalization, Other)
  Sender: FDA-Public Use
  Company Number: PT-PFIZER INC-2019204342

PATIENT
  Age: 57 Year
  Sex: Female

DRUGS (9)
  1. HYDROXYCARBAMIDE [Concomitant]
     Active Substance: HYDROXYUREA
     Dosage: 500
  2. DIAZEPAM. [Concomitant]
     Active Substance: DIAZEPAM
     Dosage: 5
  3. VENLAFAXINE [Concomitant]
     Active Substance: VENLAFAXINE HYDROCHLORIDE
     Dosage: 225
  4. LORAZEPAM. [Suspect]
     Active Substance: LORAZEPAM
     Dosage: SEVENTY TWO (72) 2.5 MG TABLETS
     Route: 048
     Dates: start: 20190423, end: 20190423
  5. ESCITALOPRAM [Suspect]
     Active Substance: ESCITALOPRAM OXALATE
     Dosage: FOURTEEN (14) 20 MG TABLETS + TWENTY SEVEN (27) 10 MG TABLETS
     Route: 048
     Dates: start: 20190423, end: 20190423
  6. OLANZAPINE. [Concomitant]
     Active Substance: OLANZAPINE
     Dosage: 5
  7. TOPIRAMATE. [Concomitant]
     Active Substance: TOPIRAMATE
     Dosage: 25
  8. ACETYLSALICYLIC ACID [Concomitant]
     Active Substance: ASPIRIN
     Dosage: 100
  9. BUPROPION. [Concomitant]
     Active Substance: BUPROPION
     Dosage: 150

REACTIONS (5)
  - Altered state of consciousness [Recovered/Resolved]
  - Hypotension [Recovered/Resolved]
  - Poisoning [Recovered/Resolved]
  - Somnolence [Recovered/Resolved]
  - Intentional overdose [Recovered/Resolved]

NARRATIVE: CASE EVENT DATE: 20190423
